FAERS Safety Report 7469446-1 (Version None)
Quarter: 2011Q2

REPORT INFORMATION
  Report Type: 
  Country: None (occurrence: None)
  Receive Date: 20110510
  Receipt Date: 20110421
  Transmission Date: 20111010
  Serious: No
  Sender: FDA-Public Use
  Company Number: US-B.I. PHARMACEUTICALS,INC./RIDGEFIELD-2011-BP-06504BP

PATIENT
  Age: 95 Year
  Sex: Female

DRUGS (12)
  1. MUCINEX [Concomitant]
  2. MULTIVITAMIN [Concomitant]
  3. PRADAXA [Suspect]
     Indication: ATRIAL FIBRILLATION
     Dosage: 150 MG
     Route: 048
     Dates: start: 20110216, end: 20110224
  4. OMEPRAZOLE DR [Concomitant]
     Dosage: 40 MG
  5. FE [Concomitant]
     Dosage: 325 MG
  6. POTASSIUM CHLORIDE [Concomitant]
  7. OSCAL [Concomitant]
  8. FUROSEMIDE [Concomitant]
  9. AMLODIPINE BESYLATE [Concomitant]
  10. VITAMIN B-12 [Concomitant]
     Dosage: 100 MCG
  11. LEVOTHYROXINE SODIUM [Concomitant]
     Dosage: 100 MCG
  12. FLECTOR [Concomitant]

REACTIONS (4)
  - ABDOMINAL DISCOMFORT [None]
  - UNRESPONSIVE TO STIMULI [None]
  - FEELING ABNORMAL [None]
  - DEPRESSED LEVEL OF CONSCIOUSNESS [None]
